FAERS Safety Report 15582619 (Version 1)
Quarter: 2018Q4

REPORT INFORMATION
  Report Type: Spontaneous
  Country: US (occurrence: US)
  Receive Date: 20181030
  Receipt Date: 20181030
  Transmission Date: 20190205
  Serious: Yes (Other)
  Sender: FDA-Public Use
  Company Number: None

PATIENT
  Age: 76 Year
  Sex: Female
  Weight: 56.25 kg

DRUGS (5)
  1. CITRACAL [Concomitant]
     Active Substance: CALCIUM CITRATE
  2. METOPROLOL. [Concomitant]
     Active Substance: METOPROLOL
  3. OLMESARTAN [Concomitant]
     Active Substance: OLMESARTAN
  4. ELIDEL [Suspect]
     Active Substance: PIMECROLIMUS
     Indication: DERMATITIS CONTACT
     Dosage: ?          QUANTITY:.01 TUBE;?
     Route: 061
  5. MEDOXOMIL [Concomitant]

REACTIONS (3)
  - Drug clearance decreased [None]
  - Pulmonary pain [None]
  - Exposure to toxic agent [None]

NARRATIVE: CASE EVENT DATE: 20181030
